FAERS Safety Report 7354650-3 (Version None)
Quarter: 2011Q1

REPORT INFORMATION
  Report Type: 
  Country: None (occurrence: None)
  Receive Date: 20110316
  Receipt Date: 20110315
  Transmission Date: 20110831
  Serious: Yes (Other)
  Sender: FDA-Public Use
  Company Number: US-PFIZER INC-2011050975

PATIENT
  Sex: Female
  Weight: 59 kg

DRUGS (3)
  1. CHANTIX [Suspect]
     Dosage: 0.5 MG, 2X/DAY
     Dates: start: 20110304
  2. ADDERALL 10 [Concomitant]
     Dosage: 15 MG 1X/DAY
  3. CHANTIX [Suspect]
     Indication: SMOKING CESSATION THERAPY
     Dosage: 0.5 MG, 1X/DAY
     Route: 048
     Dates: start: 20110302

REACTIONS (1)
  - HAEMATOCHEZIA [None]
